FAERS Safety Report 9701564 (Version 2)
Quarter: 2014Q2

REPORT INFORMATION
  Report Type: Spontaneous
  Country: US (occurrence: US)
  Receive Date: 20131121
  Receipt Date: 20140501
  Transmission Date: 20141212
  Serious: Yes (Other)
  Sender: FDA-Public Use
  Company Number: US-SA-2013SA120028

PATIENT
  Age: 42 Year
  Sex: Male

DRUGS (4)
  1. LANTUS [Suspect]
     Indication: TYPE 2 DIABETES MELLITUS
     Dosage: 30-40 UNITS LANTUS/DAY
     Route: 065
     Dates: start: 2012, end: 2013
  2. LEVEMIR [Concomitant]
  3. METFORMIN [Concomitant]
  4. AMARYL [Concomitant]

REACTIONS (6)
  - Coronary artery disease [Recovered/Resolved]
  - Hypersensitivity [Recovered/Resolved]
  - Lip swelling [Recovered/Resolved]
  - Angioedema [Recovered/Resolved]
  - Hyperglycaemia [Recovered/Resolved]
  - Glycosylated haemoglobin increased [Recovered/Resolved]
